FAERS Safety Report 5719420-8 (Version None)
Quarter: 2008Q2

REPORT INFORMATION
  Report Type: 
  Country: None (occurrence: None)
  Receive Date: 20080428
  Receipt Date: 20080423
  Transmission Date: 20081010
  Serious: Yes (Death, Other)
  Sender: FDA-Public Use
  Company Number: PHHO2008IT05251

PATIENT
  Age: 46 Year
  Sex: Male
  Weight: 72 kg

DRUGS (2)
  1. CGP 57148B [Suspect]
     Indication: CHORDOMA
     Dosage: 400 MG, QD
     Route: 048
     Dates: start: 20080222, end: 20080405
  2. PREDNISONE [Concomitant]
     Dosage: 37.5 MG, QD
     Route: 048
     Dates: start: 20080221

REACTIONS (8)
  - ANAEMIA [None]
  - BLOOD CREATININE INCREASED [None]
  - BLOOD UREA INCREASED [None]
  - HAEMOGLOBIN DECREASED [None]
  - MOUTH HAEMORRHAGE [None]
  - OEDEMA PERIPHERAL [None]
  - RENAL FAILURE [None]
  - SKIN ULCER [None]
